FAERS Safety Report 8462302-1 (Version None)
Quarter: 2012Q2

REPORT INFORMATION
  Report Type: 
  Country: None (occurrence: None)
  Receive Date: 20120618
  Receipt Date: 20120602
  Transmission Date: 20120825
  Serious: Yes (Hospitalization)
  Sender: FDA-Public Use
  Company Number: 2012AP001690

PATIENT
  Age: 60 Year
  Sex: Female

DRUGS (2)
  1. ALENDRONATE SODIUM [Suspect]
     Indication: OSTEOPOROSIS
     Dates: start: 20080101
  2. RISEDRONATE SODIUM [Suspect]
     Indication: OSTEOPOROSIS
     Dosage: 35 MG;QW
     Dates: start: 20060101, end: 20080101

REACTIONS (4)
  - BONE DENSITY INCREASED [None]
  - ATYPICAL FEMUR FRACTURE [None]
  - JOINT STIFFNESS [None]
  - ARTHRALGIA [None]
